FAERS Safety Report 10583675 (Version 4)
Quarter: 2015Q1

REPORT INFORMATION
  Report Type: Spontaneous
  Country: JP (occurrence: JP)
  Receive Date: 20141114
  Receipt Date: 20150202
  Transmission Date: 20150720
  Serious: Yes (Other)
  Sender: FDA-Public Use
  Company Number: JP-JNJFOC-20141105571

PATIENT
  Age: 26 Year
  Sex: Female

DRUGS (6)
  1. STELARA [Suspect]
     Active Substance: USTEKINUMAB
     Indication: PSORIASIS
     Route: 058
     Dates: start: 20140703
  2. OXAROL [Concomitant]
     Active Substance: MAXACALCITOL
     Route: 061
  3. STELARA [Suspect]
     Active Substance: USTEKINUMAB
     Indication: PSORIASIS
     Route: 058
     Dates: start: 20140806
  4. STELARA [Suspect]
     Active Substance: USTEKINUMAB
     Indication: PSORIASIS
     Route: 058
     Dates: start: 20140206, end: 20140206
  5. STELARA [Suspect]
     Active Substance: USTEKINUMAB
     Indication: PSORIASIS
     Route: 058
     Dates: start: 20140307, end: 20140307
  6. MYSER [Concomitant]
     Active Substance: DIFLUPREDNATE
     Route: 061

REACTIONS (2)
  - Exposure during pregnancy [Recovered/Resolved]
  - Abortion missed [Recovered/Resolved]

NARRATIVE: CASE EVENT DATE: 20140206
